FAERS Safety Report 26154059 (Version 2)
Quarter: 2025Q4

REPORT INFORMATION
  Report Type: Spontaneous
  Country: US (occurrence: US)
  Receive Date: 20251215
  Receipt Date: 20251226
  Transmission Date: 20260117
  Serious: No
  Sender: BRISTOL-MYERS SQUIBB COMPANY
  Company Number: US-BRISTOL-MYERS SQUIBB COMPANY-2025-167697

PATIENT
  Age: 31 Year
  Sex: Female

DRUGS (8)
  1. SPRYCEL [Suspect]
     Active Substance: DASATINIB
     Indication: Myeloid leukaemia
     Dosage: Q28 DAYS FOR 24 CYCLES, TAKE ONE TABLET BY MOUTH ONCE DAILY WITH OR WITHOUT FOOD.
     Route: 048
     Dates: start: 20251202
  2. SPRYCEL [Suspect]
     Active Substance: DASATINIB
     Indication: Pancytopenia
  3. hydrocodone 10 mg-acetaminophen 325 mg tablet/hydrocodone 5 mg-acetami [Concomitant]
     Indication: Pain
     Dosage: 1 TAB PO AS NEEDED FOR PAIN?HYDROCODONE 10 MG-ACETAMINOPHEN 325 MG TABLET
     Route: 048
  4. hydrocodone 10 mg-acetaminophen 325 mg tablet/hydrocodone 5 mg-acetami [Concomitant]
     Dosage: 1 TAB PO BID PRN PAIN.?HYDROCODONE 5 MG-ACETAMINOPHEN 325 MG TABLET/
     Route: 048
  5. OMEPRAZOLE [Concomitant]
     Active Substance: OMEPRAZOLE
     Indication: Gastrooesophageal reflux disease
     Dosage: 1 CAPSULE BY MOUTH DAILY
     Route: 048
  6. PEPCID [Concomitant]
     Active Substance: FAMOTIDINE
     Indication: Product used for unknown indication
     Route: 048
  7. PROCHLORPERAZINE MALEATE [Concomitant]
     Active Substance: PROCHLORPERAZINE MALEATE
     Indication: Nausea
     Dosage: TAKE 1-2 TABLETS EVERY 6 HOURS AS NEEDED FOR NAUSEA
  8. ZEPBOUND [Concomitant]
     Active Substance: TIRZEPATIDE
     Indication: Product used for unknown indication
     Dosage: 2.5MG/0.5ML SUBCUTANEOUS PEN INJECTOR, 1 INJECTION PER WEEK
     Route: 058

REACTIONS (7)
  - Headache [Not Recovered/Not Resolved]
  - Palpitations [Not Recovered/Not Resolved]
  - Rash papular [Unknown]
  - Sinus congestion [Unknown]
  - Oropharyngeal pain [Unknown]
  - Cough [Unknown]
  - Nipple blister [Unknown]
